FAERS Safety Report 5001932-6 (Version None)
Quarter: 2006Q2

REPORT INFORMATION
  Report Type: 
  Country: None (occurrence: None)
  Receive Date: 20060515
  Receipt Date: 20051019
  Transmission Date: 20061013
  Serious: Yes (Hospitalization)
  Sender: FDA-Public Use
  Company Number: US-MERCK-0510USA07934

PATIENT
  Age: 71 Year
  Sex: Female
  Weight: 76 kg

DRUGS (2)
  1. VIOXX [Suspect]
     Indication: ARTHRALGIA
     Route: 048
     Dates: start: 19990609, end: 20031007
  2. TYLENOL (CAPLET) [Concomitant]
     Route: 065

REACTIONS (20)
  - ANGINA UNSTABLE [None]
  - ARTERIOSCLEROSIS [None]
  - ATELECTASIS [None]
  - BUNDLE BRANCH BLOCK LEFT [None]
  - BUNDLE BRANCH BLOCK RIGHT [None]
  - CARDIOMEGALY [None]
  - CHEST PAIN [None]
  - CHRONIC OBSTRUCTIVE PULMONARY DISEASE [None]
  - CORONARY ARTERY OCCLUSION [None]
  - DEEP VEIN THROMBOSIS [None]
  - HYPERLIPIDAEMIA [None]
  - HYPERTENSION [None]
  - INJURY [None]
  - NAUSEA [None]
  - PULMONARY EMBOLISM [None]
  - RHINITIS ALLERGIC [None]
  - SPINAL OSTEOARTHRITIS [None]
  - SYNCOPE [None]
  - URINARY TRACT INFECTION [None]
  - VERTIGO [None]
